FAERS Safety Report 6956968-2 (Version None)
Quarter: 2010Q3

REPORT INFORMATION
  Report Type: 
  Country: None (occurrence: None)
  Receive Date: 20100827
  Receipt Date: 20100827
  Transmission Date: 20110219
  Serious: Yes (Hospitalization)
  Sender: FDA-Public Use
  Company Number: None

PATIENT
  Sex: Male
  Weight: 103 kg

DRUGS (2)
  1. CARBOPLATIN [Suspect]
     Dosage: 1030 MG
     Dates: end: 20100803
  2. TAXOL [Suspect]
     Dosage: 480 MG
     Dates: end: 20100803

REACTIONS (4)
  - BLOOD PRESSURE SYSTOLIC DECREASED [None]
  - DYSPNOEA [None]
  - FEBRILE NEUTROPENIA [None]
  - OXYGEN SATURATION DECREASED [None]
